FAERS Safety Report 20602926 (Version 3)
Quarter: 2022Q4

REPORT INFORMATION
  Report Type: Spontaneous
  Country: US (occurrence: US)
  Receive Date: 20220316
  Receipt Date: 20221201
  Transmission Date: 20230112
  Serious: Yes (Other)
  Sender: FDA-Public Use
  Company Number: US-PFIZER INC-202200373196

PATIENT
  Age: 75 Year
  Sex: Female

DRUGS (6)
  1. PREMARIN [Suspect]
     Active Substance: ESTROGENS, CONJUGATED
     Indication: Hormone replacement therapy
     Dosage: UNK
  2. PREMARIN [Suspect]
     Active Substance: ESTROGENS, CONJUGATED
     Dosage: UNK
  3. PREMARIN [Suspect]
     Active Substance: ESTROGENS, CONJUGATED
     Dosage: 0.625 MG
  4. PREMARIN [Suspect]
     Active Substance: ESTROGENS, CONJUGATED
     Dosage: 1.25 MG
  5. PREMARIN [Suspect]
     Active Substance: ESTROGENS, CONJUGATED
     Dosage: ONE DAY SHE TAKES 1.5 AND THEN TOMORROW SHE WILL TAKE THE 6.25
  6. XALATAN [Concomitant]
     Active Substance: LATANOPROST
     Indication: Glaucoma

REACTIONS (7)
  - Idiopathic environmental intolerance [Unknown]
  - Allergy to chemicals [Unknown]
  - Blood pressure increased [Unknown]
  - Confusional state [Unknown]
  - Menopause [Unknown]
  - Parosmia [Unknown]
  - Off label use [Unknown]
